FAERS Safety Report 12226303 (Version 1)
Quarter: 2016Q1

REPORT INFORMATION
  Report Type: Spontaneous
  Country: US (occurrence: US)
  Receive Date: 20160331
  Receipt Date: 20160331
  Transmission Date: 20160526
  Serious: Yes (Hospitalization)
  Sender: FDA-Public Use
  Company Number: US-BAYER-2016-058540

PATIENT
  Age: 32 Year
  Sex: Female
  Weight: 79.37 kg

DRUGS (1)
  1. MIRENA [Suspect]
     Active Substance: LEVONORGESTREL
     Indication: CONTRACEPTION
     Dosage: 20 MCG/24HR, CONT
     Route: 015
     Dates: start: 20150629, end: 20150707

REACTIONS (5)
  - Uterine perforation [None]
  - Anxiety [None]
  - Device issue [None]
  - Depression [None]
  - Complication associated with device [None]

NARRATIVE: CASE EVENT DATE: 2015
